FAERS Safety Report 13913816 (Version 1)
Quarter: 2017Q3

REPORT INFORMATION
  Report Type: Spontaneous
  Country: US (occurrence: US)
  Receive Date: 20170828
  Receipt Date: 20170828
  Transmission Date: 20171127
  Serious: No
  Sender: FDA-Public Use
  Company Number: US-ROCHE-1141011

PATIENT
  Sex: Female
  Weight: 38 kg

DRUGS (3)
  1. NUTROPIN AQ [Suspect]
     Active Substance: SOMATROPIN
     Indication: TURNER^S SYNDROME
     Dosage: 0.35 ML PER INJECTION
     Route: 058
     Dates: start: 19970108
  2. NUTROPIN AQ [Suspect]
     Active Substance: SOMATROPIN
     Dosage: 0.375 MG/KG/WEEK
     Route: 058
  3. NUTROPIN AQ [Suspect]
     Active Substance: SOMATROPIN
     Route: 058

REACTIONS (6)
  - Ear infection [Unknown]
  - Tympanic membrane hyperaemia [Unknown]
  - Ankle fracture [Unknown]
  - Rhinorrhoea [Unknown]
  - Calcium deficiency [Unknown]
  - Irritability [Unknown]
